FAERS Safety Report 6258703-2 (Version None)
Quarter: 2009Q3

REPORT INFORMATION
  Report Type: 
  Country: None (occurrence: None)
  Receive Date: 20090707
  Receipt Date: 20090629
  Transmission Date: 20100115
  Serious: Yes (Hospitalization)
  Sender: FDA-Public Use
  Company Number: A0794318A

PATIENT
  Age: 82 Year
  Sex: Female

DRUGS (2)
  1. AVANDIA [Suspect]
     Route: 048
  2. JANUVIA [Concomitant]

REACTIONS (2)
  - HYPOGLYCAEMIA [None]
  - OFF LABEL USE [None]
